FAERS Safety Report 7220636-2 (Version None)
Quarter: 2011Q1

REPORT INFORMATION
  Report Type: 
  Country: None (occurrence: None)
  Receive Date: 20110111
  Receipt Date: 20101228
  Transmission Date: 20110831
  Serious: Yes (Death)
  Sender: FDA-Public Use
  Company Number: JP-ABBOTT-10P-087-0690672-00

PATIENT
  Age: 60 Year
  Sex: Male

DRUGS (10)
  1. DECADRON [Concomitant]
     Indication: PROSTATE CANCER STAGE IV
     Route: 048
     Dates: start: 20080314, end: 20080920
  2. ZOMETA [Concomitant]
     Indication: METASTASES TO BONE
  3. AMARYL [Concomitant]
     Indication: DIABETES MELLITUS
     Route: 048
  4. ESTRAMUSTINE PHOSPHATE SODIUM [Concomitant]
     Indication: PROSTATE CANCER STAGE IV
     Route: 048
     Dates: start: 20080314, end: 20080615
  5. CHLORMADINONE ACETATE TAB [Concomitant]
     Indication: PROSTATE CANCER STAGE IV
     Route: 048
     Dates: start: 20070604, end: 20070914
  6. ZOMETA [Concomitant]
     Indication: PROSTATE CANCER STAGE IV
     Route: 042
     Dates: end: 20080901
  7. LEUPLIN SR FOR INJECTION 11.25 MG [Suspect]
     Indication: PROSTATE CANCER STAGE IV
     Dates: start: 20080523, end: 20080822
  8. DUROTEP PATCH [Concomitant]
     Indication: CANCER PAIN
     Route: 062
     Dates: start: 20080314, end: 20080920
  9. ASPIRIN [Concomitant]
     Indication: ATRIAL FIBRILLATION
     Route: 048
  10. TAXOTERE [Concomitant]
     Indication: PROSTATE CANCER STAGE IV
     Route: 042
     Dates: start: 20080411, end: 20080901

REACTIONS (1)
  - PROSTATE CANCER STAGE IV [None]
